FAERS Safety Report 16038041 (Version 3)
Quarter: 2019Q2

REPORT INFORMATION
  Report Type: Spontaneous
  Country: CA (occurrence: CA)
  Receive Date: 20190305
  Receipt Date: 20190611
  Transmission Date: 20190711
  Serious: Yes (Other)
  Sender: FDA-Public Use
  Company Number: CA-ACTELION-A-NJ2018-184385

PATIENT
  Age: 77 Year
  Sex: Female

DRUGS (4)
  1. OPSUMIT [Suspect]
     Active Substance: MACITENTAN
     Indication: PULMONARY ARTERIAL HYPERTENSION
     Dosage: 10 MG, QD
     Route: 048
     Dates: start: 20181001
  2. FOSINOPRIL [Concomitant]
     Active Substance: FOSINOPRIL
  3. LOSEC [Concomitant]
     Active Substance: OMEPRAZOLE
  4. ADALAT [Concomitant]
     Active Substance: NIFEDIPINE

REACTIONS (6)
  - Pruritus [Not Recovered/Not Resolved]
  - Urinary tract infection [Not Recovered/Not Resolved]
  - Blood pressure systolic increased [Recovering/Resolving]
  - Eyelid oedema [Not Recovered/Not Resolved]
  - Pulmonary embolism [Recovering/Resolving]
  - Rash generalised [Not Recovered/Not Resolved]

NARRATIVE: CASE EVENT DATE: 20181223
